FAERS Safety Report 4931676-8 (Version None)
Quarter: 2006Q1

REPORT INFORMATION
  Report Type: 
  Country: None (occurrence: None)
  Receive Date: 20060303
  Receipt Date: 20060110
  Transmission Date: 20060701
  Serious: Yes (Other)
  Sender: FDA-Public Use
  Company Number: US-BRISTOL-MYERS SQUIBB COMPANY-13243910

PATIENT
  Sex: Female

DRUGS (1)
  1. ERBITUX [Suspect]
     Route: 042
     Dates: start: 20060101, end: 20060101

REACTIONS (3)
  - INFUSION RELATED REACTION [None]
  - PYREXIA [None]
  - RASH [None]
